FAERS Safety Report 6152633-2 (Version None)
Quarter: 2009Q2

REPORT INFORMATION
  Report Type: 
  Country: None (occurrence: None)
  Receive Date: 20090413
  Receipt Date: 20090311
  Transmission Date: 20091009
  Serious: No
  Sender: FDA-Public Use
  Company Number: PS-AVENTIS-200911958GDDC

PATIENT
  Age: 24 Year
  Sex: Female

DRUGS (1)
  1. ARAVA [Suspect]
     Route: 048
     Dates: end: 20090201

REACTIONS (2)
  - ABORTION INDUCED [None]
  - DRUG EXPOSURE DURING PREGNANCY [None]
